FAERS Safety Report 6836588-0 (Version None)
Quarter: 2010Q3

REPORT INFORMATION
  Report Type: 
  Country: None (occurrence: None)
  Receive Date: 20100713
  Receipt Date: 20100702
  Transmission Date: 20110219
  Serious: Yes (Hospitalization, Other)
  Sender: FDA-Public Use
  Company Number: PHHO2010GB10080

PATIENT
  Sex: Female

DRUGS (1)
  1. DICLOFENAC SODIUM [Suspect]
     Indication: OSTEOARTHRITIS
     Dosage: 50 MG, ONCE EVERY 3 DAYS
     Route: 048
     Dates: start: 20080323

REACTIONS (4)
  - DIVERTICULUM [None]
  - GASTRITIS [None]
  - IRON DEFICIENCY ANAEMIA [None]
  - PYLORIC STENOSIS [None]
